FAERS Safety Report 7384526-7 (Version None)
Quarter: 2011Q1

REPORT INFORMATION
  Report Type: 
  Country: None (occurrence: None)
  Receive Date: 20110330
  Receipt Date: 20110328
  Transmission Date: 20110831
  Serious: No
  Sender: FDA-Public Use
  Company Number: US-PFIZER INC-2011068576

PATIENT

DRUGS (1)
  1. LYRICA [Suspect]

REACTIONS (3)
  - EYE IRRITATION [None]
  - EYE PRURITUS [None]
  - DRY EYE [None]
